FAERS Safety Report 18973146 (Version 2)
Quarter: 2021Q1

REPORT INFORMATION
  Report Type: Spontaneous
  Country: JP (occurrence: JP)
  Receive Date: 20210305
  Receipt Date: 20210308
  Transmission Date: 20210420
  Serious: Yes (Hospitalization)
  Sender: FDA-Public Use
  Company Number: JP-CELGENEUS-JPN-20210300345

PATIENT
  Age: 4 Decade
  Sex: Female

DRUGS (3)
  1. ZOSYN [Suspect]
     Active Substance: PIPERACILLIN SODIUM\TAZOBACTAM SODIUM
     Indication: FEBRILE NEUTROPENIA
     Route: 041
  2. ABRAXANE [Suspect]
     Active Substance: PACLITAXEL
     Indication: BREAST CANCER
     Route: 041
  3. TECENTRIQ [Concomitant]
     Active Substance: ATEZOLIZUMAB
     Indication: BREAST CANCER
     Route: 041

REACTIONS (2)
  - Hyperthyroidism [Unknown]
  - Febrile neutropenia [Unknown]
